FAERS Safety Report 21416379 (Version 1)
Quarter: 2022Q4

REPORT INFORMATION
  Report Type: Spontaneous
  Country: GB (occurrence: GB)
  Receive Date: 20221006
  Receipt Date: 20221006
  Transmission Date: 20230112
  Serious: Yes (Other)
  Sender: FDA-Public Use
  Company Number: GB-MHRA-MED-202209231316342390-TVQMJ

PATIENT
  Age: 64 Year
  Sex: Female
  Weight: 70 kg

DRUGS (9)
  1. AMLODIPINE [Suspect]
     Active Substance: AMLODIPINE BESYLATE
     Indication: Hypertension
     Dosage: 5 MILLIGRAM (5MG; ;)
     Route: 065
  2. AMLODIPINE [Suspect]
     Active Substance: AMLODIPINE BESYLATE
     Dosage: 5 MILLIGRAM, QD (TAKE ONE DAILY **ANNUAL BLOOD TEST**)
     Route: 065
     Dates: start: 20220805, end: 20220830
  3. AMLODIPINE [Suspect]
     Active Substance: AMLODIPINE BESYLATE
     Dosage: UNK
     Route: 065
     Dates: start: 20220920
  4. CLARITHROMYCIN [Concomitant]
     Active Substance: CLARITHROMYCIN
     Dosage: UNK (1 DOSAGE FORM, TAKE ONE EVERY 12 HRS)
     Route: 065
     Dates: start: 20220916, end: 20220923
  5. FLUCLOXACILLIN [Concomitant]
     Active Substance: FLUCLOXACILLIN
     Dosage: UNK, Q4D (1 DOSAGE FORM, TAKE ONE 4 TIMES/DAY)
     Route: 065
     Dates: start: 20220905, end: 20220908
  6. LANSOPRAZOLE [Concomitant]
     Active Substance: LANSOPRAZOLE
     Dosage: UNK, QD (1 DOSAGE FORM, TAKE ONE ONCE DAILY)
     Route: 065
     Dates: start: 20220725
  7. METRONIDAZOLE [Concomitant]
     Active Substance: METRONIDAZOLE
     Dosage: UNK, Q3D (1 DOSAGE FORM, TAKE ONE 3 TIMES/DAY)
     Route: 065
     Dates: start: 20220916, end: 20220923
  8. ACETAMINOPHEN [Concomitant]
     Active Substance: ACETAMINOPHEN
     Dosage: UNK (2 DOSAGE FORM, 2 FOUR TIMES DAILY)
     Route: 065
     Dates: start: 20220725
  9. RAMIPRIL [Concomitant]
     Active Substance: RAMIPRIL
     Dosage: UNK, QD (1 DOSAGE FORM, TAKE ONE DAILY **ANNUAL BLOOD TEST**)
     Route: 065
     Dates: start: 20220830

REACTIONS (2)
  - Oedema peripheral [Recovered/Resolved]
  - Skin ulcer [Not Recovered/Not Resolved]

NARRATIVE: CASE EVENT DATE: 20220808
